FAERS Safety Report 7647108-5 (Version None)
Quarter: 2011Q3

REPORT INFORMATION
  Report Type: 
  Country: None (occurrence: None)
  Receive Date: 20110801
  Receipt Date: 20110721
  Transmission Date: 20111222
  Serious: Yes (Other)
  Sender: FDA-Public Use
  Company Number: US-ROCHE-734245

PATIENT
  Sex: Female
  Weight: 50.8 kg

DRUGS (3)
  1. ACCUTANE [Suspect]
     Route: 065
     Dates: start: 19920801
  2. ACCUTANE [Suspect]
     Route: 065
     Dates: start: 19950101, end: 19980101
  3. ACCUTANE [Suspect]
     Indication: ACNE
     Route: 065
     Dates: start: 19890801

REACTIONS (7)
  - INTESTINAL HAEMORRHAGE [None]
  - ARTHRITIS [None]
  - INTESTINAL OBSTRUCTION [None]
  - COLITIS ULCERATIVE [None]
  - GASTROINTESTINAL INJURY [None]
  - INFLAMMATORY BOWEL DISEASE [None]
  - DEPRESSION [None]
